FAERS Safety Report 6185608-8 (Version None)
Quarter: 2009Q2

REPORT INFORMATION
  Report Type: 
  Country: None (occurrence: None)
  Receive Date: 20090511
  Receipt Date: 20090429
  Transmission Date: 20091009
  Serious: Yes (Hospitalization)
  Sender: FDA-Public Use
  Company Number: US-PFIZER INC-2009206005

PATIENT
  Sex: Male

DRUGS (2)
  1. TOVIAZ [Suspect]
  2. DIFLUCAN [Suspect]

REACTIONS (2)
  - DEHYDRATION [None]
  - RENAL DISORDER [None]
